FAERS Safety Report 17157120 (Version 2)
Quarter: 2020Q1

REPORT INFORMATION
  Report Type: Spontaneous
  Country: US (occurrence: US)
  Receive Date: 20191216
  Receipt Date: 20200130
  Transmission Date: 20200409
  Serious: No
  Sender: FDA-Public Use
  Company Number: US-BAYER-2019-228256

PATIENT
  Age: 22 Year
  Sex: Female
  Weight: 62.1 kg

DRUGS (2)
  1. MIRENA [Suspect]
     Active Substance: LEVONORGESTREL
     Indication: CONTRACEPTION
     Dosage: 20 MCG/24HR, CONT
     Route: 015
     Dates: start: 20190911, end: 20190911
  2. MIRENA [Suspect]
     Active Substance: LEVONORGESTREL
     Indication: CONTRACEPTION
     Dosage: 20 MCG/24HR, CONT
     Route: 015
     Dates: start: 20190903, end: 20190910

REACTIONS (3)
  - Medical device monitoring error [None]
  - Complication of device insertion [None]
  - Contraindicated device used [None]

NARRATIVE: CASE EVENT DATE: 20190911
